FAERS Safety Report 9248090 (Version 1)
Quarter: 2013Q2

REPORT INFORMATION
  Report Type: Spontaneous
  Country: JP (occurrence: JP)
  Receive Date: 20130423
  Receipt Date: 20130423
  Transmission Date: 20140414
  Serious: Yes (Other)
  Sender: FDA-Public Use
  Company Number: JP-PFIZER INC-2013122482

PATIENT
  Sex: Female

DRUGS (2)
  1. SOLANAX [Suspect]
     Dosage: 0.2 MG, 3X/DAY, AS NEEDED
     Route: 048
  2. RIVOTRIL [Concomitant]

REACTIONS (5)
  - Blood pressure increased [Unknown]
  - Blood pressure decreased [Unknown]
  - Dizziness [Unknown]
  - Vision blurred [Unknown]
  - Malaise [Unknown]
